FAERS Safety Report 4439676-1 (Version None)
Quarter: 2004Q3

REPORT INFORMATION
  Report Type: 
  Country: None (occurrence: None)
  Receive Date: 20040831
  Receipt Date: 20040818
  Transmission Date: 20050211
  Serious: Yes (Life-Threatening)
  Sender: FDA-Public Use
  Company Number: THQ2004A00711

PATIENT
  Age: 61 Year
  Sex: Female

DRUGS (3)
  1. ACTOS [Suspect]
     Indication: DIABETES MELLITUS NON-INSULIN-DEPENDENT
     Dosage: 15 MG (15 MG, 1 IN 1 D), PER ORAL
     Route: 048
     Dates: start: 20040501, end: 20040723
  2. LEVOTHYROXINE SODIUM [Concomitant]
  3. OEMEPRAZOLE (OMEPRAZOLE) [Concomitant]

REACTIONS (4)
  - CONDITION AGGRAVATED [None]
  - HEPATOMEGALY [None]
  - METASTASES TO LIVER [None]
  - THERAPY NON-RESPONDER [None]
